FAERS Safety Report 8016669-9 (Version None)
Quarter: 2012Q1

REPORT INFORMATION
  Report Type: 
  Country: None (occurrence: None)
  Receive Date: 20120102
  Receipt Date: 20111220
  Transmission Date: 20120608
  Serious: Yes (Hospitalization)
  Sender: FDA-Public Use
  Company Number: JP-BRISTOL-MYERS SQUIBB COMPANY-16317414

PATIENT
  Age: 47 Year
  Sex: Female

DRUGS (2)
  1. TAXOL [Suspect]
     Indication: CERVIX CARCINOMA
  2. CISPLATIN [Suspect]
     Indication: CERVIX CARCINOMA

REACTIONS (6)
  - PERIPHERAL CIRCULATORY FAILURE [None]
  - EXTREMITY NECROSIS [None]
  - SEPTIC SHOCK [None]
  - OESOPHAGEAL STENOSIS [None]
  - CELLULITIS [None]
  - BONE MARROW FAILURE [None]
